FAERS Safety Report 17797593 (Version 1)
Quarter: 2020Q2

REPORT INFORMATION
  Report Type: Spontaneous
  Country: IT (occurrence: IT)
  Receive Date: 20200518
  Receipt Date: 20200518
  Transmission Date: 20200714
  Serious: Yes (Other)
  Sender: FDA-Public Use
  Company Number: IT-MYLANLABS-2020M1048422

PATIENT
  Age: 55 Year
  Sex: Female

DRUGS (5)
  1. CARBOPLATIN. [Suspect]
     Active Substance: CARBOPLATIN
     Indication: OVARIAN CANCER
     Dosage: AUC 4 (ON DAY 1); SIX CYCLES TOTAL
     Route: 065
     Dates: start: 201602, end: 201606
  2. OLAPARIB. [Suspect]
     Active Substance: OLAPARIB
     Indication: OVARIAN CANCER
     Dosage: 300 MILLIGRAM, BID
     Route: 065
  3. GEMCITABINE. [Suspect]
     Active Substance: GEMCITABINE
     Indication: OVARIAN CANCER
     Dosage: 800 MILLIGRAM/SQ. METER ON DAYS 1 AND 8; SIX CYCLES TOTAL
     Route: 065
  4. BEVACIZUMAB. [Suspect]
     Active Substance: BEVACIZUMAB
     Indication: OVARIAN CANCER
     Dosage: 15 MILLIGRAM/KILOGRAM A TOTAL OF 22 CYCLES
     Route: 065
  5. DOXORUBICIN [Suspect]
     Active Substance: DOXORUBICIN
     Indication: OVARIAN CANCER
     Dosage: 40 MILLIGRAM/SQ. METER, 28D CYCLE STOPPED AFTER 2 CYCLES
     Dates: start: 201808

REACTIONS (3)
  - BRCA2 gene mutation [Unknown]
  - Drug resistance [Unknown]
  - Infusion related reaction [Unknown]
